FAERS Safety Report 19182973 (Version 1)
Quarter: 2021Q2

REPORT INFORMATION
  Report Type: Spontaneous
  Country: CA (occurrence: CA)
  Receive Date: 20210426
  Receipt Date: 20210426
  Transmission Date: 20210717
  Serious: Yes (Other)
  Sender: FDA-Public Use
  Company Number: CA-JNJFOC-20210443597

PATIENT
  Age: 69 Year
  Sex: Female
  Weight: 77 kg

DRUGS (5)
  1. CITALOPRAM [Concomitant]
     Active Substance: CITALOPRAM HYDROBROMIDE
     Route: 065
  2. SALAZOPYRIN [Concomitant]
     Active Substance: SULFASALAZINE
     Route: 065
  3. INFLIXIMAB, RECOMBINANT [Suspect]
     Active Substance: INFLIXIMAB
     Indication: CROHN^S DISEASE
     Route: 042
  4. CALCIUM [Concomitant]
     Active Substance: CALCIUM
     Route: 065
  5. PANTOPRAZOLE [Concomitant]
     Active Substance: PANTOPRAZOLE
     Route: 065

REACTIONS (6)
  - Haematoma [Recovered/Resolved]
  - Injection site extravasation [Recovered/Resolved]
  - Headache [Recovered/Resolved]
  - Cataract [Recovered/Resolved]
  - Injection site mass [Recovered/Resolved]
  - Off label use [Recovered/Resolved]
